FAERS Safety Report 8556012-X (Version None)
Quarter: 2012Q3

REPORT INFORMATION
  Report Type: 
  Country: None (occurrence: None)
  Receive Date: 20120719
  Receipt Date: 20120709
  Transmission Date: 20120928
  Serious: Yes (Hospitalization, Other)
  Sender: FDA-Public Use
  Company Number: 2012MA008475

PATIENT
  Age: 36 Year
  Sex: Male

DRUGS (1)
  1. LIDOCAINE [Suspect]
     Indication: WOUND
     Dosage: ;X1;

REACTIONS (7)
  - INFECTION [None]
  - SKIN NECROSIS [None]
  - MALAISE [None]
  - BACTERIAL INFECTION [None]
  - CHILLS [None]
  - CITROBACTER TEST POSITIVE [None]
  - EYELID DISORDER [None]
